FAERS Safety Report 4397181-5 (Version None)
Quarter: 2004Q3

REPORT INFORMATION
  Report Type: 
  Country: None (occurrence: None)
  Receive Date: 20040708
  Receipt Date: 20040625
  Transmission Date: 20050211
  Serious: Yes (Hospitalization, Other)
  Sender: FDA-Public Use
  Company Number: 2004043793

PATIENT
  Age: 75 Year
  Sex: Female
  Weight: 80 kg

DRUGS (12)
  1. SORTIS (ATORVASTATIN) [Suspect]
     Indication: ANGINA UNSTABLE
     Dosage: 20 MG (20 MG, 1 IN 1 D), ORAL
     Route: 048
     Dates: start: 20040619, end: 20040620
  2. LERCANIDIPINE [Concomitant]
  3. LISINOPRIL [Concomitant]
  4. ALLOPURINOL [Concomitant]
  5. AQUAPHOR HEALING OINTMENT (BISABOLOL, CERESIN, PARAFFIN SOFT, PARAFFIN [Concomitant]
  6. ALL OTHEER THERAPEUTICS PRODUCTS(ALL OTHEER THERAPEUTICS PRODUCTS) [Concomitant]
  7. HYDROCHLOROTHIAZIDE [Concomitant]
  8. PANTOPRAZOLE SODIUM [Concomitant]
  9. HEPARIN [Concomitant]
  10. GLYCERYL TRINITRATE (GLYCERYL TRINITRAATE) [Concomitant]
  11. OXAZEPAM [Concomitant]
  12. INSULIN [Concomitant]

REACTIONS (1)
  - RHABDOMYOLYSIS [None]
